FAERS Safety Report 6902790-2 (Version None)
Quarter: 2010Q3

REPORT INFORMATION
  Report Type: 
  Country: None (occurrence: None)
  Receive Date: 20100803
  Receipt Date: 20080912
  Transmission Date: 20110219
  Serious: Yes (Other)
  Sender: FDA-Public Use
  Company Number: US-PFIZER INC-2008078148

PATIENT
  Age: 95 Year
  Sex: Male

DRUGS (5)
  1. LYRICA [Suspect]
     Indication: PAIN
     Route: 048
     Dates: end: 20080701
  2. HYZAAR [Concomitant]
     Indication: BLOOD PRESSURE INCREASED
     Route: 048
  3. FINASTERIDE [Concomitant]
     Indication: BENIGN PROSTATIC HYPERPLASIA
     Route: 048
  4. FOLIC ACID [Concomitant]
     Indication: PERNICIOUS ANAEMIA
     Route: 048
  5. VITAMIN B-12 [Concomitant]
     Indication: PERNICIOUS ANAEMIA
     Route: 030

REACTIONS (1)
  - OLIGURIA [None]
